FAERS Safety Report 10331814 (Version 2)
Quarter: 2014Q3

REPORT INFORMATION
  Report Type: Spontaneous
  Country: JP (occurrence: JP)
  Receive Date: 20140722
  Receipt Date: 20140722
  Transmission Date: 20150326
  Serious: Yes (Death, Life-Threatening, Other)
  Sender: FDA-Public Use
  Company Number: JP-ROCHE-1402664

PATIENT
  Age: 67 Year
  Sex: Male
  Weight: 66 kg

DRUGS (8)
  1. AVASTIN [Suspect]
     Active Substance: BEVACIZUMAB
     Indication: LUNG ADENOCARCINOMA METASTATIC
     Route: 041
     Dates: start: 20131105, end: 20140214
  2. ALIMTA [Suspect]
     Active Substance: PEMETREXED DISODIUM
     Indication: LUNG ADENOCARCINOMA METASTATIC
     Route: 041
     Dates: start: 20131105, end: 20131126
  3. ALIMTA [Suspect]
     Active Substance: PEMETREXED DISODIUM
     Indication: LUNG ADENOCARCINOMA METASTATIC
     Route: 041
     Dates: start: 20140310, end: 20140421
  4. CARBOPLATIN. [Suspect]
     Active Substance: CARBOPLATIN
     Indication: LUNG ADENOCARCINOMA METASTATIC
     Route: 041
     Dates: start: 20131126, end: 20131126
  5. CARBOPLATIN. [Suspect]
     Active Substance: CARBOPLATIN
     Indication: LUNG ADENOCARCINOMA METASTATIC
     Route: 041
     Dates: start: 20131224, end: 20140114
  6. AVASTIN [Suspect]
     Active Substance: BEVACIZUMAB
     Indication: LUNG ADENOCARCINOMA METASTATIC
     Route: 041
     Dates: start: 20140310, end: 20140421
  7. ALIMTA [Suspect]
     Active Substance: PEMETREXED DISODIUM
     Indication: LUNG ADENOCARCINOMA METASTATIC
     Route: 041
     Dates: start: 20131224, end: 20140214
  8. CARBOPLATIN. [Suspect]
     Active Substance: CARBOPLATIN
     Indication: LUNG ADENOCARCINOMA METASTATIC
     Route: 041
     Dates: start: 20131105, end: 20131105

REACTIONS (4)
  - Lung neoplasm malignant [Fatal]
  - Oesophageal perforation [Not Recovered/Not Resolved]
  - Oesophageal stenosis [Unknown]
  - Mediastinitis [Unknown]

NARRATIVE: CASE EVENT DATE: 20140327
